FAERS Safety Report 6062499-7 (Version None)
Quarter: 2009Q1

REPORT INFORMATION
  Report Type: 
  Country: None (occurrence: None)
  Receive Date: 20090129
  Receipt Date: 20090122
  Transmission Date: 20090719
  Serious: No
  Sender: FDA-Public Use
  Company Number: MSTR-NO-0805S-0018

PATIENT
  Age: 76 Year
  Sex: Male
  Weight: 43.3 kg

DRUGS (10)
  1. METASTRON [Suspect]
     Indication: METASTASES TO BONE
     Dosage: SINGLE DOSE, I.V.
     Route: 042
     Dates: start: 20080229, end: 20080229
  2. METASTRON [Suspect]
     Indication: METASTATIC PAIN
     Dosage: SINGLE DOSE, I.V.
     Route: 042
     Dates: start: 20080229, end: 20080229
  3. ZOLEDRONIC ACID [Concomitant]
  4. LOXOPROFEN [Concomitant]
  5. MORPHINE [Concomitant]
  6. FLURBIPROFEN AXETIL [Concomitant]
  7. MELOXICAM [Concomitant]
  8. ACETAMINOPHEN [Concomitant]
  9. NAPROXEN [Concomitant]
  10. MINOCYCLINE HYDROCHLORIDE [Concomitant]

REACTIONS (2)
  - ASTHENIA [None]
  - PAIN [None]
